FAERS Safety Report 11146408 (Version 1)
Quarter: 2015Q2

REPORT INFORMATION
  Report Type: Spontaneous
  Country: GB (occurrence: None)
  Receive Date: 20150526
  Receipt Date: 20150526
  Transmission Date: 20150821
  Serious: Yes (Other)
  Sender: FDA-Public Use
  Company Number: GB-DEXPHARM-20150323

PATIENT
  Age: 43 Year
  Sex: Female

DRUGS (1)
  1. OMEPRAZOLE 40 MG KREMERS URBAN [Suspect]
     Active Substance: OMEPRAZOLE
     Dosage: 40 MG, 7 IN 1 TOTAL

REACTIONS (8)
  - Crying [None]
  - Fall [None]
  - Intentional overdose [None]
  - Suicidal ideation [None]
  - Alcohol use [None]
  - Suicide attempt [None]
  - Blood potassium increased [None]
  - Face injury [None]

NARRATIVE: CASE EVENT DATE: 20150513
